FAERS Safety Report 9337948 (Version 1)
Quarter: 2013Q2

REPORT INFORMATION
  Report Type: Spontaneous
  Country: JP (occurrence: JP)
  Receive Date: 20130609
  Receipt Date: 20130609
  Transmission Date: 20140414
  Serious: Yes (Hospitalization)
  Sender: FDA-Public Use
  Company Number: JP-009507513-1306JPN003172

PATIENT
  Age: 62 Year
  Sex: Female

DRUGS (4)
  1. PEGINTRON [Suspect]
     Indication: CHRONIC HEPATITIS C
     Dosage: 80 MICROGRAM, QW
     Route: 058
     Dates: start: 20130201
  2. REBETOL [Suspect]
     Indication: CHRONIC HEPATITIS C
     Dosage: 600 MG DAILY DOSE UNKNOWN
     Route: 048
     Dates: start: 20130201
  3. TELAVIC [Suspect]
     Dosage: 1500 MG DAILY DOSE UNKNOWN
     Route: 048
     Dates: start: 20130201, end: 20130201
  4. TELAVIC [Suspect]
     Dosage: 2250 MG
     Route: 048
     Dates: start: 20130202

REACTIONS (1)
  - Decreased appetite [Recovered/Resolved]
